FAERS Safety Report 6990420-3 (Version None)
Quarter: 2010Q3

REPORT INFORMATION
  Report Type: 
  Country: None (occurrence: None)
  Receive Date: 20100916
  Receipt Date: 20100617
  Transmission Date: 20110219
  Serious: Yes (Life-Threatening, Disabling)
  Sender: FDA-Public Use
  Company Number: GB-PFIZER INC-2010064557

PATIENT
  Age: 84 Year
  Sex: Female
  Weight: 51 kg

DRUGS (4)
  1. PREGABALIN [Suspect]
     Indication: PAIN
     Dosage: 25 MG, 2X/DAY
     Route: 048
     Dates: start: 20100401, end: 20100423
  2. GLICLAZIDE [Concomitant]
     Indication: TYPE 1 DIABETES MELLITUS
     Dosage: 30 MG, 1X/DAY
     Dates: start: 20100219
  3. METFORMIN [Concomitant]
     Indication: TYPE 1 DIABETES MELLITUS
     Dosage: 500 MG, 1X/DAY
     Dates: start: 20100219
  4. ROPINIROLE [Concomitant]
     Indication: RESTLESS LEGS SYNDROME
     Dosage: 1 MG, 1X/DAY
     Dates: start: 20100219

REACTIONS (1)
  - ATRIOVENTRICULAR BLOCK COMPLETE [None]
